FAERS Safety Report 23750218 (Version 3)
Quarter: 2024Q2

REPORT INFORMATION
  Report Type: Report from Study
  Country: US (occurrence: US)
  Receive Date: 20240417
  Receipt Date: 20240506
  Transmission Date: 20240716
  Serious: No
  Sender: FDA-Public Use
  Company Number: US-BIOVITRUM-2024-US-004957

PATIENT
  Age: 68 Year
  Sex: Female

DRUGS (2)
  1. KINERET [Suspect]
     Active Substance: ANAKINRA
     Indication: Rheumatoid arthritis
     Dosage: 100 MG, DAILY
     Route: 058
     Dates: start: 20240330
  2. KINERET [Suspect]
     Active Substance: ANAKINRA
     Dosage: 100 MG, DAILY
     Route: 058
     Dates: start: 20240329

REACTIONS (9)
  - Rheumatoid arthritis [Unknown]
  - Product use issue [Unknown]
  - Injection site reaction [Unknown]
  - Rash [Unknown]
  - Urticaria [Unknown]
  - Paraesthesia [Unknown]
  - Malaise [Unknown]
  - Swelling [Unknown]
  - Feeling abnormal [Unknown]
